FAERS Safety Report 14113096 (Version 5)
Quarter: 2018Q1

REPORT INFORMATION
  Report Type: Spontaneous
  Country: JP (occurrence: JP)
  Receive Date: 20171023
  Receipt Date: 20180227
  Transmission Date: 20180508
  Serious: Yes (Life-Threatening, Hospitalization, Other)
  Sender: FDA-Public Use
  Company Number: JP-009507513-1708JPN001107J

PATIENT
  Age: 76 Year
  Sex: Male
  Weight: 40 kg

DRUGS (4)
  1. CARBAZOCHROME SULFONATE NA [Concomitant]
     Indication: SQUAMOUS CELL CARCINOMA OF LUNG
     Dosage: 30 MG, PRN
     Route: 048
  2. KEYTRUDA [Suspect]
     Active Substance: PEMBROLIZUMAB
     Indication: SQUAMOUS CELL CARCINOMA OF LUNG
     Dosage: 200 MG, Q3W
     Route: 041
     Dates: start: 20170620, end: 20170822
  3. FASTIC [Concomitant]
     Active Substance: NATEGLINIDE
     Dosage: 90 MG, TID
     Route: 048
  4. ASTOMIN [Concomitant]
     Active Substance: DIMEMORFAN
     Indication: SQUAMOUS CELL CARCINOMA OF LUNG
     Dosage: 10 MG, PRN
     Route: 048

REACTIONS (3)
  - Blood creatinine increased [Not Recovered/Not Resolved]
  - Tubulointerstitial nephritis [Recovered/Resolved]
  - Decreased appetite [Recovered/Resolved]

NARRATIVE: CASE EVENT DATE: 20170625
